FAERS Safety Report 15388695 (Version 1)
Quarter: 2018Q3

REPORT INFORMATION
  Report Type: Spontaneous
  Country: US (occurrence: US)
  Receive Date: 20180907
  Receipt Date: 20180907
  Transmission Date: 20181010
  Serious: Yes (Other)
  Sender: FDA-Public Use
  Company Number: None

PATIENT
  Age: 38 Year
  Sex: Female
  Weight: 101.1 kg

DRUGS (8)
  1. MORPHINE [Concomitant]
     Active Substance: MORPHINE
     Dates: start: 20180814, end: 20180824
  2. VANCOMYCIN [Suspect]
     Active Substance: VANCOMYCIN
     Indication: CELLULITIS
     Route: 041
     Dates: start: 20180814, end: 20180815
  3. LISINOPRIL. [Concomitant]
     Active Substance: LISINOPRIL
     Dates: start: 20180814, end: 20180815
  4. LORAZEPAM. [Concomitant]
     Active Substance: LORAZEPAM
     Dates: start: 20180814, end: 20180815
  5. VANCOMYCIN [Suspect]
     Active Substance: VANCOMYCIN
     Indication: OSTEOMYELITIS
     Route: 041
     Dates: start: 20180814, end: 20180815
  6. ZOSYN [Concomitant]
     Active Substance: PIPERACILLIN SODIUM\TAZOBACTAM SODIUM
     Dates: start: 20180814, end: 20180816
  7. INSULIN LISPIRO SLIDING SCALE [Concomitant]
     Dates: start: 20180814, end: 20180824
  8. PREGABALIN. [Concomitant]
     Active Substance: PREGABALIN
     Dates: start: 20180814, end: 20180824

REACTIONS (3)
  - Acute kidney injury [None]
  - Foot amputation [None]
  - Nephropathy toxic [None]

NARRATIVE: CASE EVENT DATE: 20180816
